FAERS Safety Report 18497978 (Version 2)
Quarter: 2020Q4

REPORT INFORMATION
  Report Type: Spontaneous
  Country: NL (occurrence: NL)
  Receive Date: 20201112
  Receipt Date: 20201214
  Transmission Date: 20210114
  Serious: Yes (Hospitalization)
  Sender: FDA-Public Use
  Company Number: NL-MYLANLABS-2020M1093639

PATIENT
  Age: 84 Year
  Sex: Female
  Weight: 58.5 kg

DRUGS (6)
  1. ROSUVASTATINE                      /01588601/ [Concomitant]
     Active Substance: ROSUVASTATIN
     Dosage: FILM-COATED TABLET, 20 MG (MILLIGRAM)
  2. METFORMIN [Suspect]
     Active Substance: METFORMIN HYDROCHLORIDE
     Indication: TYPE 2 DIABETES MELLITUS
     Dosage: 2 DD 1 TABLET
     Dates: start: 2019, end: 20200924
  3. ZOPICLON [Concomitant]
     Active Substance: ZOPICLONE
     Dosage: TABLET, 7,5 MG (MILLIGRAM)
  4. SITAGLIPTINE [Concomitant]
     Active Substance: SITAGLIPTIN
     Dosage: TABLET, 100 MG (MILLIGRAM)
  5. HYDROXOCOBALAMINE [Concomitant]
     Active Substance: HYDROXOCOBALAMIN
     Dosage: INJECTION LIQUID, 500 ?G/ML (MICROGRAM PER MILLILITER)
  6. GLICLAZIDE [Concomitant]
     Active Substance: GLICLAZIDE
     Dosage: TABLET 30 MG 1 TIME PER DAY

REACTIONS (1)
  - Metabolic acidosis [Recovering/Resolving]

NARRATIVE: CASE EVENT DATE: 20200901
